FAERS Safety Report 18616003 (Version 2)
Quarter: 2021Q1

REPORT INFORMATION
  Report Type: Other
  Country: CA (occurrence: CA)
  Receive Date: 20201214
  Receipt Date: 20210111
  Transmission Date: 20210419
  Serious: Yes (Other)
  Sender: FDA-Public Use
  Company Number: CA-CELLTRION INC.-2020CA033452

PATIENT

DRUGS (10)
  1. BENADRYL [Concomitant]
     Active Substance: DIPHENHYDRAMINE HYDROCHLORIDE
     Indication: PREMEDICATION
     Dosage: 50 MG
     Route: 048
  2. DIPHENHYDRAMINE. [Concomitant]
     Active Substance: DIPHENHYDRAMINE
     Indication: PREMEDICATION
     Dosage: 60 MG
     Route: 048
  3. METHADONE [Concomitant]
     Active Substance: METHADONE HYDROCHLORIDE
     Indication: PAIN
     Dosage: 5 MG, 3 EVERY 1 DAYS
     Route: 065
  4. PERJETA [Suspect]
     Active Substance: PERTUZUMAB
     Indication: CHOLANGIOCARCINOMA
     Dosage: 840 MG
     Route: 042
  5. HYDROMORPHONE [Concomitant]
     Active Substance: HYDROMORPHONE
  6. TRASTUZUMAB (UNKNOWN) [Suspect]
     Active Substance: TRASTUZUMAB
     Indication: CHOLANGIOCARCINOMA
     Dosage: UNK
     Route: 041
  7. TRASTUZUMAB (UNKNOWN) [Suspect]
     Active Substance: TRASTUZUMAB
     Dosage: 324 MG, 1 EVERY 3 WEEKS
     Route: 042
  8. PERJETA [Suspect]
     Active Substance: PERTUZUMAB
     Indication: CHOLANGIOCARCINOMA
     Dosage: 420 MG, 1 EVERY 3 WEEKS
     Route: 042
  9. PERJETA [Suspect]
     Active Substance: PERTUZUMAB
     Dosage: 324 MG, 1 EVERY 3 WEEKS
     Route: 042
  10. PERJETA [Suspect]
     Active Substance: PERTUZUMAB
     Dosage: 324 MG, 1 EVERY 3 WEEKS
     Route: 042

REACTIONS (4)
  - Ill-defined disorder [Unknown]
  - Off label use [Unknown]
  - Weight decreased [Unknown]
  - Cancer pain [Unknown]
